FAERS Safety Report 6113901-3 (Version None)
Quarter: 2009Q1

REPORT INFORMATION
  Report Type: 
  Country: None (occurrence: None)
  Receive Date: 20090312
  Receipt Date: 20080808
  Transmission Date: 20090719
  Serious: No
  Sender: FDA-Public Use
  Company Number: US-ABBOTT-08P-163-0469474-00

PATIENT
  Sex: Female

DRUGS (1)
  1. LUPRON DEPOT [Suspect]
     Indication: OVULATION PAIN
     Route: 030
     Dates: start: 20080501, end: 20080701

REACTIONS (3)
  - DEPRESSION [None]
  - FATIGUE [None]
  - MOOD SWINGS [None]
